FAERS Safety Report 11023765 (Version 2)
Quarter: 2015Q2

REPORT INFORMATION
  Report Type: Spontaneous
  Country: US (occurrence: US)
  Receive Date: 20150413
  Receipt Date: 20150416
  Transmission Date: 20150821
  Serious: No
  Sender: FDA-Public Use
  Company Number: US-PFIZER INC-2015116093

PATIENT
  Age: 82 Year
  Sex: Female
  Weight: 79 kg

DRUGS (6)
  1. CARDIZEM [Suspect]
     Active Substance: DILTIAZEM HYDROCHLORIDE
     Indication: ATRIAL FIBRILLATION
     Dosage: UNK
     Dates: end: 20150327
  2. ELIQUIS [Concomitant]
     Active Substance: APIXABAN
     Indication: BLOOD DISORDER
     Dosage: 5 ?G (MCG), 2X/DAY
  3. TIKOSYN [Suspect]
     Active Substance: DOFETILIDE
     Dosage: LOWER DOSE
     Dates: start: 201503, end: 201503
  4. TIKOSYN [Suspect]
     Active Substance: DOFETILIDE
     Indication: ATRIAL FIBRILLATION
     Dosage: 325MCG FOR 3 DAYS
     Dates: start: 201503, end: 201503
  5. TIKOSYN [Suspect]
     Active Substance: DOFETILIDE
     Dosage: 1DF THAT NIGHT
     Dates: start: 20150327, end: 20150327
  6. TIKOSYN [Suspect]
     Active Substance: DOFETILIDE
     Dosage: 2 DF, UNK
     Dates: start: 20150328

REACTIONS (8)
  - Arrhythmia [Unknown]
  - Mobility decreased [Not Recovered/Not Resolved]
  - Asthenia [Not Recovered/Not Resolved]
  - Joint swelling [Unknown]
  - Tremor [Unknown]
  - Chest pain [Not Recovered/Not Resolved]
  - Dry mouth [Not Recovered/Not Resolved]
  - Dyspnoea [Not Recovered/Not Resolved]

NARRATIVE: CASE EVENT DATE: 201503
